FAERS Safety Report 6155465-4 (Version None)
Quarter: 2009Q2

REPORT INFORMATION
  Report Type: 
  Country: None (occurrence: None)
  Receive Date: 20090415
  Receipt Date: 20090414
  Transmission Date: 20091009
  Serious: Yes (Death, Hospitalization)
  Sender: FDA-Public Use
  Company Number: PHHY2009CA02343

PATIENT
  Sex: Male

DRUGS (8)
  1. CLOZARIL [Suspect]
     Indication: SCHIZOAFFECTIVE DISORDER
     Dosage: 400 MG, QHS
     Route: 048
     Dates: start: 20040901
  2. CLOZARIL [Suspect]
     Indication: SCHIZOPHRENIA
  3. BUPROPION HCL [Concomitant]
     Dosage: 150 (NO UNITS SPECIFIED) DAILY
  4. LITHIUM CARBONATE [Concomitant]
     Dosage: 100 MG, QHS
  5. CLONAZEPAM [Concomitant]
     Dosage: 0.5 MG, BID
  6. METFORMIN HCL [Concomitant]
     Dosage: 500 MG, BID
  7. LAMOTRIGINE [Concomitant]
     Dosage: 100 MG, BID
  8. ATORVASTATIN [Concomitant]
     Dosage: 10 MG DAILY

REACTIONS (4)
  - APALLIC SYNDROME [None]
  - EXTUBATION [None]
  - MYOCARDIAL INFARCTION [None]
  - NEUROLOGICAL EXAMINATION ABNORMAL [None]
